FAERS Safety Report 13835723 (Version 1)
Quarter: 2017Q3

REPORT INFORMATION
  Report Type: Spontaneous
  Country: US (occurrence: US)
  Receive Date: 20170804
  Receipt Date: 20170804
  Transmission Date: 20171127
  Serious: Yes (Death)
  Sender: FDA-Public Use
  Company Number: US-BECTON DICKINSON-2017BDN00196

PATIENT
  Age: 60 Year
  Sex: Female

DRUGS (1)
  1. CHLORHEXIDINE [Suspect]
     Active Substance: CHLORHEXIDINE
     Route: 065

REACTIONS (6)
  - Wrong drug administered [Fatal]
  - Exposure to toxic agent [Fatal]
  - Cerebrovascular accident [Fatal]
  - Injection site injury [Fatal]
  - Multiple organ dysfunction syndrome [Fatal]
  - Leg amputation [Fatal]
